FAERS Safety Report 9297823 (Version 1)
Quarter: 2013Q2

REPORT INFORMATION
  Report Type: Spontaneous
  Country: US (occurrence: None)
  Receive Date: 20130517
  Receipt Date: 20130517
  Transmission Date: 20140414
  Serious: Yes (Hospitalization)
  Sender: FDA-Public Use
  Company Number: None

PATIENT
  Age: 54 Year
  Sex: Male

DRUGS (3)
  1. EDURANT [Suspect]
     Indication: HIV INFECTION
     Dates: start: 20110801, end: 20111116
  2. TRUVADA [Concomitant]
  3. BACTRIM [Concomitant]

REACTIONS (4)
  - Cardio-respiratory arrest [None]
  - Overdose [None]
  - Drug-induced liver injury [None]
  - Hepatitis C [None]
